FAERS Safety Report 8036484-X (Version None)
Quarter: 2012Q1

REPORT INFORMATION
  Report Type: 
  Country: None (occurrence: None)
  Receive Date: 20120109
  Receipt Date: 20111212
  Transmission Date: 20120608
  Serious: Yes (Death, Hospitalization, Other)
  Sender: FDA-Public Use
  Company Number: 2011SP058351

PATIENT
  Age: 50 Year
  Sex: Female

DRUGS (5)
  1. PEG-INTRON [Suspect]
     Indication: PRODUCT USED FOR UNKNOWN INDICATION
     Dosage: 120 MCG;QW
     Dates: start: 20110301, end: 20111204
  2. SOLU-MEDROL [Suspect]
     Indication: PRODUCT USED FOR UNKNOWN INDICATION
  3. REBETOL [Suspect]
     Indication: PRODUCT USED FOR UNKNOWN INDICATION
     Dosage: 1200 MG;QD
     Dates: start: 20110301, end: 20111204
  4. VICTRELIS [Suspect]
     Indication: HEPATITIS C
     Dosage: 2400 MG;QD;
     Dates: start: 20111128
  5. VICTRELIS [Suspect]
     Indication: HEPATIC CIRRHOSIS
     Dosage: 2400 MG;QD;
     Dates: start: 20111128

REACTIONS (11)
  - PANCYTOPENIA [None]
  - NO THERAPEUTIC RESPONSE [None]
  - HAEMODYNAMIC INSTABILITY [None]
  - BLOOD BILIRUBIN INCREASED [None]
  - HAEMOLYTIC ANAEMIA [None]
  - BRAIN ABSCESS [None]
  - GENERAL PHYSICAL HEALTH DETERIORATION [None]
  - LUNG INFILTRATION [None]
  - DIABETES MELLITUS [None]
  - ENCEPHALOPATHY [None]
  - CARDIAC ARREST [None]
